FAERS Safety Report 9036224 (Version 2)
Quarter: 2013Q1

REPORT INFORMATION
  Report Type: Report from Study
  Country: JP (occurrence: JP)
  Receive Date: 20130129
  Receipt Date: 20130328
  Transmission Date: 20140127
  Serious: Yes (Other)
  Sender: FDA-Public Use
  Company Number: PHHY2013JP007120

PATIENT
  Age: 77 None
  Sex: Male

DRUGS (12)
  1. AMN107 [Suspect]
     Indication: CHRONIC MYELOID LEUKAEMIA
     Dosage: 200 MG, DAILY
     Dates: start: 20100119
  2. AMN107 [Suspect]
     Dosage: 400 MG, DAILY
     Dates: start: 20100130
  3. AMN107 [Suspect]
     Dosage: 600 MG, DAILY
     Dates: start: 20100417
  4. AMN107 [Suspect]
     Dosage: 400 MG, DAILY
     Dates: start: 20100501, end: 20100528
  5. CEREKINON [Concomitant]
     Dosage: 300 MG, UNK
     Route: 048
     Dates: start: 20091201, end: 20100528
  6. GASCON [Concomitant]
     Dosage: 120 MG, UNK
     Route: 048
     Dates: start: 20091201, end: 20100528
  7. LAC-B [Concomitant]
     Route: 048
     Dates: start: 20080815, end: 20100528
  8. DAIKENCHUTO [Concomitant]
     Dosage: 7.5 G, UNK
     Route: 048
     Dates: start: 20091124, end: 20100528
  9. ALESION [Concomitant]
     Dosage: 20 MG, UNK
     Route: 048
     Dates: start: 20090327, end: 20100528
  10. GASMOTIN [Concomitant]
     Dosage: 15 MG, UNK
     Route: 048
     Dates: start: 20091113, end: 20100528
  11. MAGMITT [Concomitant]
     Dosage: 1980 MG, UNK
     Route: 048
     Dates: start: 20091113, end: 20100528
  12. CRAVIT [Concomitant]
     Dosage: 500 MG, UNK
     Dates: start: 20100430, end: 20100514

REACTIONS (3)
  - Cholangitis [Recovering/Resolving]
  - Arthralgia [Recovering/Resolving]
  - Muscle spasms [Recovered/Resolved]
